FAERS Safety Report 22012768 (Version 1)
Quarter: 2023Q1

REPORT INFORMATION
  Report Type: Spontaneous
  Country: US (occurrence: US)
  Receive Date: 20230220
  Receipt Date: 20230220
  Transmission Date: 20230418
  Serious: No
  Sender: FDA-Public Use
  Company Number: US-ABBVIE-4282109

PATIENT
  Sex: Female

DRUGS (1)
  1. HUMIRA [Suspect]
     Active Substance: ADALIMUMAB
     Indication: Product used for unknown indication
     Route: 058

REACTIONS (5)
  - Carpal tunnel syndrome [Unknown]
  - Upper limb fracture [Unknown]
  - Hypoacusis [Unknown]
  - Injection site bruising [Unknown]
  - Unevaluable event [Unknown]
